FAERS Safety Report 7406851-3 (Version None)
Quarter: 2011Q2

REPORT INFORMATION
  Report Type: 
  Country: None (occurrence: None)
  Receive Date: 20110411
  Receipt Date: 20110408
  Transmission Date: 20111010
  Serious: Yes (Other)
  Sender: FDA-Public Use
  Company Number: RU-PFIZER INC-2011053918

PATIENT
  Age: 80 Year
  Sex: Male

DRUGS (6)
  1. DIROTON [Suspect]
     Indication: HYPERTENSION
     Dosage: 5 MG, 1X/DAY, IN THE EVENING
     Route: 048
     Dates: start: 20110318, end: 20110319
  2. OMNIC [Concomitant]
     Indication: BENIGN PROSTATIC HYPERPLASIA
     Dosage: 0.4 MG, 1X/DAY EVERY MORNING
     Route: 048
     Dates: start: 20010101
  3. NORVASC [Suspect]
     Indication: HYPERTENSION
     Dosage: 5 MG, 1X/DAY EVERY NIGHT
     Route: 048
     Dates: start: 19960101, end: 20090101
  4. DIABETON [Concomitant]
     Indication: DIABETES MELLITUS
     Dosage: 60 MG (2 TABLETS 30 MG IN THE MORNING), 1X/DAY
     Route: 048
     Dates: start: 20010101
  5. NORVASC [Suspect]
     Dosage: 5 MG, 1X/DAY, IN THE MORNING
     Route: 048
     Dates: start: 20110318, end: 20110319
  6. NORVASC [Suspect]
     Dosage: 10 MG, 1X/DAY TWO TABLETS 5MG EVERY NIGHT
     Route: 048
     Dates: start: 20090101

REACTIONS (4)
  - PNEUMONIA [None]
  - BLOOD PRESSURE SYSTOLIC INCREASED [None]
  - BLOOD PRESSURE INADEQUATELY CONTROLLED [None]
  - SLEEP DISORDER [None]
